FAERS Safety Report 23397222 (Version 2)
Quarter: 2024Q1

REPORT INFORMATION
  Report Type: Spontaneous
  Country: KR (occurrence: KR)
  Receive Date: 20240112
  Receipt Date: 20240116
  Transmission Date: 20240410
  Serious: Yes (Other)
  Sender: FDA-Public Use
  Company Number: KR-JNJFOC-20240103501

PATIENT
  Age: 67 Year
  Sex: Male

DRUGS (2)
  1. ERDAFITINIB [Suspect]
     Active Substance: ERDAFITINIB
     Indication: Renal cancer
     Route: 048
  2. ERDAFITINIB [Suspect]
     Active Substance: ERDAFITINIB
     Indication: Bladder cancer

REACTIONS (3)
  - Pemphigoid [Recovering/Resolving]
  - Paronychia [Unknown]
  - Off label use [Unknown]
